FAERS Safety Report 17208456 (Version 3)
Quarter: 2023Q4

REPORT INFORMATION
  Report Type: Other
  Country: SK (occurrence: SK)
  Receive Date: 20191227
  Receipt Date: 20231220
  Transmission Date: 20240110
  Serious: Yes (Hospitalization, Other)
  Sender: FDA-Public Use
  Company Number: SK-ROCHE-2508553

PATIENT
  Age: 26 Year
  Sex: Male

DRUGS (6)
  1. SOMATROPIN [Suspect]
     Active Substance: SOMATROPIN
     Indication: Performance enhancing product use
     Route: 065
  2. SOMATROPIN [Suspect]
     Active Substance: SOMATROPIN
     Indication: Muscle hypertrophy
  3. TESTOSTERONE [Suspect]
     Active Substance: TESTOSTERONE
     Indication: Performance enhancing product use
     Route: 065
  4. TESTOSTERONE [Suspect]
     Active Substance: TESTOSTERONE
     Indication: Muscle hypertrophy
  5. CLENBUTEROL [Suspect]
     Active Substance: CLENBUTEROL
     Indication: Performance enhancing product use
     Route: 065
  6. CLENBUTEROL [Suspect]
     Active Substance: CLENBUTEROL
     Indication: Muscle hypertrophy

REACTIONS (5)
  - Drug abuse [Unknown]
  - Secondary hypertension [Recovered/Resolved]
  - Hepatomegaly [Unknown]
  - Tachycardia [Unknown]
  - Phaeochromocytoma [Recovered/Resolved]
